FAERS Safety Report 14278464 (Version 2)
Quarter: 2018Q3

REPORT INFORMATION
  Report Type: Spontaneous
  Country: US (occurrence: US)
  Receive Date: 20171211
  Receipt Date: 20180705
  Transmission Date: 20181010
  Serious: Yes (Other)
  Sender: FDA-Public Use
  Company Number: US-OTSUKA-2017_015146

PATIENT
  Sex: Female

DRUGS (5)
  1. ABILIFY [Suspect]
     Active Substance: ARIPIPRAZOLE
     Indication: BIPOLAR DISORDER
     Dosage: 2 MG, QD
     Route: 065
     Dates: start: 201301
  2. ABILIFY [Suspect]
     Active Substance: ARIPIPRAZOLE
     Indication: OBSESSIVE-COMPULSIVE DISORDER
     Dosage: 15 MG, QD
     Route: 065
  3. ABILIFY [Suspect]
     Active Substance: ARIPIPRAZOLE
     Indication: EATING DISORDER
     Dosage: 20 MG, QD
     Route: 065
  4. ABILIFY [Suspect]
     Active Substance: ARIPIPRAZOLE
     Indication: MAJOR DEPRESSION
     Dosage: 5 MG, QD
     Route: 065
  5. ABILIFY [Suspect]
     Active Substance: ARIPIPRAZOLE
     Dosage: 30 MG, QD
     Route: 065
     Dates: end: 201610

REACTIONS (14)
  - Condition aggravated [Unknown]
  - Injury [Unknown]
  - Pain [Unknown]
  - Anxiety [Unknown]
  - Gambling disorder [Unknown]
  - Disability [Unknown]
  - Compulsive sexual behaviour [Unknown]
  - Impulsive behaviour [Unknown]
  - Economic problem [Unknown]
  - Eating disorder [Unknown]
  - Emotional distress [Unknown]
  - Compulsive shopping [Unknown]
  - Product use in unapproved indication [Unknown]
  - Obsessive-compulsive disorder [Unknown]
